FAERS Safety Report 10836626 (Version 1)
Quarter: 2015Q1

REPORT INFORMATION
  Report Type: Other
  Country: FR (occurrence: FR)
  Receive Date: 20150219
  Receipt Date: 20150219
  Transmission Date: 20150721
  Serious: Yes (Life-Threatening, Hospitalization, Disabling)
  Sender: FDA-Public Use
  Company Number: FR-MYLANLABS-2015M1004803

PATIENT

DRUGS (2)
  1. FONDAPARINUX [Suspect]
     Active Substance: FONDAPARINUX
     Indication: PULMONARY EMBOLISM
     Dosage: UNK
     Route: 058
     Dates: start: 201407, end: 20141023
  2. CALCIPARINE [Concomitant]
     Active Substance: HEPARIN CALCIUM
     Indication: PULMONARY EMBOLISM
     Dosage: UNK

REACTIONS (2)
  - Subdural haematoma [Recovered/Resolved with Sequelae]
  - Off label use [Recovered/Resolved]

NARRATIVE: CASE EVENT DATE: 20141023
